FAERS Safety Report 4446030-5 (Version None)
Quarter: 2004Q3

REPORT INFORMATION
  Report Type: 
  Country: None (occurrence: None)
  Receive Date: 20040910
  Receipt Date: 20040716
  Transmission Date: 20050211
  Serious: Yes (Other)
  Sender: FDA-Public Use
  Company Number: AU-GLAXOSMITHKLINE-B0340401A

PATIENT
  Age: 75 Year
  Sex: Female
  Weight: 60 kg

DRUGS (3)
  1. VENTOLIN [Suspect]
     Indication: ASTHMA
     Route: 055
     Dates: start: 20020101, end: 20040801
  2. SERETIDE [Suspect]
     Indication: ASTHMA
     Route: 055
     Dates: start: 20000101, end: 20040801
  3. ATROVENT [Concomitant]
     Route: 065

REACTIONS (4)
  - ASTHMA [None]
  - DIZZINESS [None]
  - DYSPNOEA EXACERBATED [None]
  - NAUSEA [None]
